FAERS Safety Report 21393435 (Version 2)
Quarter: 2022Q4

REPORT INFORMATION
  Report Type: Spontaneous
  Country: CN (occurrence: None)
  Receive Date: 20220929
  Receipt Date: 20221025
  Transmission Date: 20230112
  Serious: Yes (Hospitalization)
  Sender: FDA-Public Use
  Company Number: 2022A314831

PATIENT
  Age: 75 Year
  Sex: Female

DRUGS (2)
  1. SYMBICORT [Suspect]
     Active Substance: BUDESONIDE\FORMOTEROL FUMARATE DIHYDRATE
     Indication: Asthma
     Dosage: TWO TIMES A DAY
     Route: 055
  2. SYMBICORT [Suspect]
     Active Substance: BUDESONIDE\FORMOTEROL FUMARATE DIHYDRATE
     Indication: Asthma
     Dosage: SOMETIMES ONE TIME A DAY
     Route: 055

REACTIONS (8)
  - Emphysema [Unknown]
  - Discomfort [Recovering/Resolving]
  - Respiration abnormal [Unknown]
  - Pruritus [Not Recovered/Not Resolved]
  - Drug ineffective [Recovering/Resolving]
  - Product dose omission issue [Unknown]
  - Device material issue [Unknown]
  - Product taste abnormal [Unknown]

NARRATIVE: CASE EVENT DATE: 20220101
